FAERS Safety Report 13098846 (Version 6)
Quarter: 2017Q1

REPORT INFORMATION
  Report Type: Report from Study
  Country: UA (occurrence: UA)
  Receive Date: 20170109
  Receipt Date: 20170224
  Transmission Date: 20170428
  Serious: Yes (Death)
  Sender: FDA-Public Use
  Company Number: UA-PFIZER INC-2017001892

PATIENT
  Age: 38 Year
  Sex: Male
  Weight: 65 kg

DRUGS (10)
  1. PF-06439535 [Suspect]
     Active Substance: INVESTIGATIONAL PRODUCT
     Indication: NON-SMALL CELL LUNG CANCER
     Dosage: 975 MG, CYCLIC (EVERY  21 DAY)
     Route: 042
     Dates: start: 20161020
  2. CARBOPLATIN. [Suspect]
     Active Substance: CARBOPLATIN
     Indication: NON-SMALL CELL LUNG CANCER
     Dosage: 662 MG, CYCLIC (EVERY 21 DAY)
     Dates: start: 20161020, end: 20161213
  3. XARELTO [Concomitant]
     Active Substance: RIVAROXABAN
     Indication: PROPHYLAXIS
     Dosage: UNK
     Dates: start: 20161213
  4. PACLITAXEL. [Suspect]
     Active Substance: PACLITAXEL
     Indication: NON-SMALL CELL LUNG CANCER
     Dosage: 356 MG, CYCLIC (EVERY 21 DAY)
     Route: 042
     Dates: start: 20161020, end: 20161213
  5. PREDUCTAL MR [Concomitant]
     Active Substance: TRIMETAZIDINE DIHYDROCHLORIDE
     Indication: CARDIAC FAILURE
     Dosage: UNK
     Dates: start: 20161014
  6. PF-06439535 [Suspect]
     Active Substance: INVESTIGATIONAL PRODUCT
     Dosage: 975 MG, CYCLIC (EVERY  21 DAY)
     Route: 042
     Dates: start: 20161110
  7. BERLITHION [Concomitant]
     Indication: PROPHYLAXIS
     Dosage: UNK
     Dates: start: 20161213
  8. PF-06439535 [Suspect]
     Active Substance: INVESTIGATIONAL PRODUCT
     Dosage: 975 MG, CYCLIC (EVERY  21 DAY)
     Route: 042
     Dates: end: 20161213
  9. TRIFAS /00918101/ [Concomitant]
     Indication: PERICARDITIS
     Dosage: UNK
     Dates: start: 20161014
  10. VEROSHPIRON [Concomitant]
     Indication: PERICARDITIS
     Dosage: UNK
     Dates: start: 20161014

REACTIONS (1)
  - Cardiovascular insufficiency [Fatal]

NARRATIVE: CASE EVENT DATE: 20161230
